FAERS Safety Report 21134731 (Version 1)
Quarter: 2022Q3

REPORT INFORMATION
  Report Type: Spontaneous
  Country: US (occurrence: US)
  Receive Date: 20220727
  Receipt Date: 20220727
  Transmission Date: 20221026
  Serious: No
  Sender: FDA-Public Use
  Company Number: US-TEVA-2022-US-2054398

PATIENT
  Age: 65 Year
  Sex: Female

DRUGS (1)
  1. AMPHETAMINE SULFATE\DEXTROAMPHETAMINE [Suspect]
     Active Substance: AMPHETAMINE SULFATE\DEXTROAMPHETAMINE
     Indication: Fatigue
     Route: 065
     Dates: start: 202201

REACTIONS (4)
  - Product use in unapproved indication [Unknown]
  - Feeling jittery [Recovered/Resolved]
  - Agitation [Recovered/Resolved]
  - Formication [Recovered/Resolved]
